FAERS Safety Report 9467900 (Version 1)
Quarter: 2013Q3

REPORT INFORMATION
  Report Type: Spontaneous
  Country: US (occurrence: US)
  Receive Date: 20130821
  Receipt Date: 20130821
  Transmission Date: 20140515
  Serious: No
  Sender: FDA-Public Use
  Company Number: US-MUTUAL PHARMACEUTICAL COMPANY, INC.-SPLC20130001

PATIENT
  Age: 59 Year
  Sex: Female
  Weight: 56.75 kg

DRUGS (1)
  1. SPIRONOLACTONE [Suspect]
     Indication: JOINT SWELLING
     Route: 048
     Dates: start: 201302

REACTIONS (1)
  - Rash [Recovering/Resolving]
